FAERS Safety Report 7784680-9 (Version None)
Quarter: 2011Q3

REPORT INFORMATION
  Report Type: 
  Country: None (occurrence: None)
  Receive Date: 20110928
  Receipt Date: 20110928
  Transmission Date: 20111222
  Serious: Yes (Hospitalization, Other)
  Sender: FDA-Public Use
  Company Number: PT-ABBOTT-11P-130-0844252-00

PATIENT
  Age: 46 Year
  Sex: Male

DRUGS (13)
  1. CYCLOSPORINE [Concomitant]
     Indication: PRODUCT USED FOR UNKNOWN INDICATION
     Dosage: FOR THREE YEARS
  2. ENBREL [Suspect]
     Indication: LEUKOCYTE ANTIGEN B-27 POSITIVE
  3. ENBREL [Suspect]
     Indication: PSORIASIS
  4. ENBREL [Suspect]
  5. GOLIMUMAB [Suspect]
  6. HUMIRA [Suspect]
     Indication: SERONEGATIVE ARTHRITIS
     Dates: start: 20101001, end: 20110101
  7. GOLIMUMAB [Suspect]
     Indication: LEUKOCYTE ANTIGEN B-27 POSITIVE
  8. HUMIRA [Suspect]
  9. ALLOPURINOL [Concomitant]
     Indication: PRODUCT USED FOR UNKNOWN INDICATION
  10. ENBREL [Suspect]
     Indication: SERONEGATIVE ARTHRITIS
     Dates: start: 20060101, end: 20101001
  11. VOLTAREN [Concomitant]
     Indication: PRODUCT USED FOR UNKNOWN INDICATION
  12. GOLIMUMAB [Suspect]
     Indication: SERONEGATIVE ARTHRITIS
     Dosage: RECEIVED ONLY TWO DOSES-50MG MONTHLY
     Route: 065
  13. UNSPECIFIED ANTI-INFLAMMATORY DRUG [Concomitant]
     Indication: PRODUCT USED FOR UNKNOWN INDICATION

REACTIONS (5)
  - DEMYELINATION [None]
  - ASTHENIA [None]
  - DRUG INEFFECTIVE [None]
  - SPONDYLOARTHROPATHY [None]
  - MONOPARESIS [None]
